FAERS Safety Report 9099497 (Version 1)
Quarter: 2013Q1

REPORT INFORMATION
  Report Type: Spontaneous
  Country: GB (occurrence: GB)
  Receive Date: 20130214
  Receipt Date: 20130214
  Transmission Date: 20140127
  Serious: Yes (Other)
  Sender: FDA-Public Use
  Company Number: PHFR2013GB001156

PATIENT
  Age: 34 Year
  Sex: Female

DRUGS (8)
  1. CLOZARIL [Suspect]
     Indication: SCHIZOPHRENIA
     Dosage: 350 MG,
     Route: 048
     Dates: start: 20121221
  2. CLOZARIL [Suspect]
     Dosage: 400 MG,
     Route: 048
     Dates: start: 20130206
  3. HYOSCINE [Concomitant]
  4. NAPROXEN [Concomitant]
  5. PREGABALIN [Concomitant]
  6. LANSOPRAZOLE [Concomitant]
  7. RIFAMPICIN [Concomitant]
  8. DOXYCYCLINE [Concomitant]

REACTIONS (4)
  - Limb injury [Unknown]
  - Fall [Unknown]
  - Infection [Unknown]
  - Antipsychotic drug level below therapeutic [Unknown]
